FAERS Safety Report 8561259-2 (Version None)
Quarter: 2012Q3

REPORT INFORMATION
  Report Type: 
  Country: None (occurrence: None)
  Receive Date: 20120802
  Receipt Date: 20120725
  Transmission Date: 20120928
  Serious: Yes (Hospitalization)
  Sender: FDA-Public Use
  Company Number: DE-B.I. PHARMACEUTICALS,INC./RIDGEFIELD-2012-DE-01741DE

PATIENT
  Age: 89 Year
  Sex: Male
  Weight: 84 kg

DRUGS (13)
  1. TAMSULOSIN HCL [Concomitant]
  2. NEBIVOLOL [Concomitant]
  3. FUROSEMID [Concomitant]
  4. SPIRONOLACTONE [Concomitant]
  5. FINASTERID [Concomitant]
  6. ACETAMINOPHEN [Concomitant]
  7. DULEXETIN [Concomitant]
  8. PRADAXA [Suspect]
     Indication: ATRIAL FIBRILLATION
     Dosage: 220 MG
     Dates: start: 20120101
  9. ASPIRIN [Concomitant]
     Dosage: 100
  10. ALLOPURINOL [Concomitant]
  11. PANTOPROZOL [Concomitant]
  12. METAMIZOL [Concomitant]
  13. ARCOXIA [Concomitant]

REACTIONS (2)
  - OEDEMA [None]
  - RENAL FAILURE [None]
